FAERS Safety Report 7513804-3 (Version None)
Quarter: 2011Q2

REPORT INFORMATION
  Report Type: 
  Country: None (occurrence: None)
  Receive Date: 20110531
  Receipt Date: 20110525
  Transmission Date: 20111010
  Serious: Yes (Hospitalization, Disabling)
  Sender: FDA-Public Use
  Company Number: PHHY2011GB29215

PATIENT
  Age: 85 Year
  Sex: Female

DRUGS (12)
  1. METRONIDAZOLE [Suspect]
     Indication: LOWER RESPIRATORY TRACT INFECTION
     Dosage: 400 MG, UNK
     Route: 048
     Dates: start: 20110323, end: 20110324
  2. CLARITHROMYCIN [Suspect]
     Indication: LOWER RESPIRATORY TRACT INFECTION
     Dosage: 500 MG, UNK
     Route: 048
     Dates: start: 20110323, end: 20110324
  3. CODEINE SULFATE [Concomitant]
     Dosage: UNK
  4. CYCLIZINE [Concomitant]
  5. ACETAMINOPHEN [Concomitant]
  6. LISINOPRIL [Concomitant]
  7. METOCLOPRAMIDE [Concomitant]
  8. AMITRIPTYLINE HCL [Concomitant]
     Dosage: UNK
  9. NYSTATIN [Concomitant]
  10. ESOMEPRAZOLE MAGNESIUM [Concomitant]
  11. FLUCONAZOLE [Concomitant]
  12. GAVISCON [Concomitant]

REACTIONS (3)
  - CONFUSIONAL STATE [None]
  - ENCEPHALITIS [None]
  - DELIRIUM [None]
